FAERS Safety Report 7396202-5 (Version None)
Quarter: 2011Q2

REPORT INFORMATION
  Report Type: 
  Country: None (occurrence: None)
  Receive Date: 20110406
  Receipt Date: 20110329
  Transmission Date: 20111010
  Serious: Yes (Hospitalization)
  Sender: FDA-Public Use
  Company Number: US-ASTELLAS-2011US001275

PATIENT
  Sex: Female

DRUGS (5)
  1. BACTRIM [Concomitant]
     Indication: ANTIBIOTIC THERAPY
     Dosage: 2 DF, UID/QD
     Route: 065
  2. ACETAMINOPHEN AND HYDROCODONE BITARTRATE [Concomitant]
     Indication: PAIN
     Dosage: 10/325 PRN
     Route: 065
  3. PROGRAF [Suspect]
     Indication: LIVER TRANSPLANT
     Dosage: 1 MG, BID
     Route: 048
  4. DEPO-PROVERA [Concomitant]
     Indication: CONTRACEPTION
     Dosage: 1 SHOT, EVERY 3 MONTHS
     Route: 065
  5. DOCUSATE [Concomitant]
     Indication: BOWEL MOVEMENT IRREGULARITY
     Dosage: 2 DF, BID
     Route: 065

REACTIONS (1)
  - TREATMENT NONCOMPLIANCE [None]
